FAERS Safety Report 21355672 (Version 2)
Quarter: 2022Q3

REPORT INFORMATION
  Report Type: Report from Study
  Country: DE (occurrence: DE)
  Receive Date: 20220920
  Receipt Date: 20220920
  Transmission Date: 20221027
  Serious: Yes (Death, Life-Threatening, Other)
  Sender: FDA-Public Use
  Company Number: DE-BoehringerIngelheim-2022-BI-188201

PATIENT
  Age: 79 Year
  Sex: Male
  Weight: 59 kg

DRUGS (21)
  1. SPESOLIMAB [Suspect]
     Active Substance: SPESOLIMAB
     Indication: Pustular psoriasis
     Route: 042
     Dates: start: 20220819, end: 20220819
  2. SPIRIVA Inh. 18 mcg [Concomitant]
     Indication: Product used for unknown indication
     Dosage: 1-0-0-0 ON  21-AUG-2022 ?(EXACT START DATE WAS UNKNOWN)
  3. OXYGEN [Concomitant]
     Active Substance: OXYGEN
     Indication: Chronic obstructive pulmonary disease
  4. Pantoprazol- 1A 40 mg [Concomitant]
     Indication: Product used for unknown indication
     Dosage: 1-0-0-0 ON 20-AUG-2022 AND 21-AUG-2022 (EXACT START DATE WAS UNKNOWN)
     Route: 048
  5. Metformin Hexal 1g [Concomitant]
     Indication: Product used for unknown indication
     Dosage: 0-0-1-0 ON 19-AUG-2022 ?1-0-1-0 ON 20-AUG-2022 ?1-0-1-0 ON 21-AUG-2022 ?(EXACT START DATE WAS UNKNOW
     Route: 048
  6. ASPIRIN [Concomitant]
     Active Substance: ASPIRIN
     Indication: Product used for unknown indication
     Dosage: 1-0-0-0 ON 20-AUG-2022 ?1-0-0-0 ON 21-AUG-2022 ?(EXACT START DATE WAS UNKNOWN)
     Route: 048
  7. XARELTO [Concomitant]
     Active Substance: RIVAROXABAN
     Indication: Product used for unknown indication
     Dosage: 1-0-0-0 ON 20-AUG-2022 ?1-0-0-0 ON 21-AUG-2022 ?(EXACT START DATE WAS UNKNOWN)
     Route: 048
  8. HCT hexal 12.5 mg [Concomitant]
     Indication: Product used for unknown indication
     Dosage: 1-0-0-0 ON 20-AUG-2022 ?1-0-0-0 ON 21-AUG-2022 ?(EXACT START DATE WAS UNKNOWN)
     Route: 048
  9. Bisoprolol ratioph. 2.5 mg [Concomitant]
     Indication: Product used for unknown indication
     Dosage: 0-0-1-0 ON 19-AUG-2022?1-0-1-0 ON 20-AUG-2022 ?1-0-1-0 ON 21-AUG-2022 ?(EXACT START DATE WAS UNKNOWN
     Route: 048
  10. Atorvastatin Hexal 10 mg [Concomitant]
     Indication: Product used for unknown indication
     Dosage: 0-0-1-0 ON 19-AUG-2022?0-0-1-0 ON 20-AUG-2022 ?0-0-1-0 ON 21-AUG-2022 ?(EXACT START DATE WAS UNKNOWN
     Route: 048
  11. Oxycod. Hexal ret 5 mg [Concomitant]
     Indication: Product used for unknown indication
     Dosage: 2-0-2-0 ON 21-AUG-2022 ?(EXACT START DATE WAS UNKNOWN)
     Route: 048
  12. NALOXONE HYDROCHLORIDE\TILIDINE HYDROCHLORIDE [Concomitant]
     Active Substance: NALOXONE HYDROCHLORIDE\TILIDINE HYDROCHLORIDE
     Indication: Product used for unknown indication
     Dosage: 0-0-20-0 ON 19-AUG-2022?20-0-20-0 ON 20-AUG-2022 ??(EXACT START DATE WAS UNKNOWN)
     Route: 048
  13. Novamins.ratioph. Tr. 500mg/ml [Concomitant]
     Indication: Product used for unknown indication
     Dosage: 0-40-40-40 ON 19-AUG-2022?40-40-40-40 ON 20-AUG-2022 ?40-40-40-40 ON 21-AUG-2022 ??(EXACT START DATE
     Route: 048
  14. Paracet.Hexal b. Fieb. Schm. 5 [Concomitant]
     Indication: Product used for unknown indication
     Dosage: 2-2-2-0 ON 21-AUG-2022 ?(EXACT START DATE WAS UNKNOWN)
     Route: 048
  15. CPS Plv. 15 g [Concomitant]
     Indication: Product used for unknown indication
     Dosage: 0-1-0--0 ON 21-AUG-2022 ?(EXACT START DATE WAS UNKNOWN)
     Route: 048
  16. NaCL 9 per cent 500 ml [Concomitant]
     Indication: Product used for unknown indication
     Dosage: 500 ML ON  21-AUG-2022 ?(EXACT START DATE WAS UNKNOWN)
     Route: 051
  17. Lasix inj 40 mg (4ml) NACL 0.9 percent 0.096l [Concomitant]
     Indication: Hyperkalaemia
     Dosage: 0-0-1-0 ON  21-AUG-2022 ?(EXACT START DATE WAS UNKNOWN)
     Route: 051
  18. Symbicort Turboh. 320/9 mcg [Concomitant]
     Indication: Product used for unknown indication
     Dosage: 1-0-1-0 ON  21-AUG-2022 ?(EXACT START DATE WAS UNKNOWN)
     Route: 055
  19. Sultanol DA 0.1 mg [Concomitant]
     Indication: Product used for unknown indication
     Dosage: 1-0-0-0 ON  21-AUG-2022 ?(EXACT START DATE WAS UNKNOWN)?FORM OF ADMIN AEROSOL
  20. Sedonium 300 mg [Concomitant]
     Indication: Product used for unknown indication
     Dosage: 2-0-0-0 ON  21-AUG-2022 ?(EXACT START DATE WAS UNKNOWN)
  21. Telfast 180 mg [Concomitant]
     Indication: Product used for unknown indication
     Dosage: 1-0-0-0 ON  21-AUG-2022 ?(EXACT START DATE WAS UNKNOWN)

REACTIONS (8)
  - Liver injury [Fatal]
  - Pulseless electrical activity [Fatal]
  - Multiple organ dysfunction syndrome [Fatal]
  - Hypoxia [Fatal]
  - Aspiration [Fatal]
  - Renal failure [Unknown]
  - Acidosis [Unknown]
  - Hepatic enzyme increased [Unknown]

NARRATIVE: CASE EVENT DATE: 20220821
